FAERS Safety Report 23992658 (Version 1)
Quarter: 2024Q2

REPORT INFORMATION
  Report Type: Spontaneous
  Country: US (occurrence: US)
  Receive Date: 20240620
  Receipt Date: 20240620
  Transmission Date: 20240715
  Serious: Yes (Death, Other)
  Sender: FDA-Public Use
  Company Number: US-AMGEN-USASP2024114990

PATIENT
  Age: 10 Year
  Sex: Male

DRUGS (3)
  1. TALIMOGENE LAHERPAREPVEC [Suspect]
     Active Substance: TALIMOGENE LAHERPAREPVEC
     Indication: Malignant melanoma
     Dosage: UNK
     Route: 065
  2. NIVOLUMAB [Concomitant]
     Active Substance: NIVOLUMAB
  3. TRAMETINIB [Concomitant]
     Active Substance: TRAMETINIB
     Dosage: UNK UNK, QD

REACTIONS (14)
  - Death [Fatal]
  - Metastatic malignant melanoma [Unknown]
  - Iridocyclitis [Unknown]
  - Cataract [Unknown]
  - Deafness unilateral [Unknown]
  - Delirium [Unknown]
  - Off label use [Unknown]
  - Dry eye [Unknown]
  - Back pain [Unknown]
  - Nausea [Unknown]
  - Dyspnoea [Unknown]
  - Arthralgia [Unknown]
  - Pain [Unknown]
  - Pyrexia [Unknown]
